FAERS Safety Report 12383204 (Version 1)
Quarter: 2016Q2

REPORT INFORMATION
  Report Type: Spontaneous
  Country: US (occurrence: US)
  Receive Date: 20160518
  Receipt Date: 20160518
  Transmission Date: 20160815
  Serious: No
  Sender: FDA-Public Use
  Company Number: US-PFIZER INC-2016256089

PATIENT
  Age: 72 Year
  Sex: Female

DRUGS (1)
  1. IBRANCE [Suspect]
     Active Substance: PALBOCICLIB
     Indication: NEOPLASM MALIGNANT
     Dosage: 100 MG, CYCLIC (100MG ONCE A DAY FOR 21 DAYS AND OFF 7 DAYS)
     Route: 048
     Dates: start: 20160303

REACTIONS (2)
  - White blood cell count decreased [Unknown]
  - Fatigue [Unknown]
